FAERS Safety Report 24136795 (Version 1)
Quarter: 2024Q3

REPORT INFORMATION
  Report Type: Spontaneous
  Country: US (occurrence: US)
  Receive Date: 20240725
  Receipt Date: 20240725
  Transmission Date: 20241016
  Serious: Yes (Life-Threatening, Hospitalization, Other)
  Sender: CELLTRION
  Company Number: US-CELLTRION INC.-2024US017501

PATIENT

DRUGS (2)
  1. BEVACIZUMAB [Suspect]
     Active Substance: BEVACIZUMAB
     Indication: Hepatocellular carcinoma
     Dosage: ONE DOSE OF ATEZO/BEV / D-14/FIRST LINE THERAPY
  2. ATEZOLIZUMAB [Suspect]
     Active Substance: ATEZOLIZUMAB
     Indication: Hepatocellular carcinoma
     Dosage: ONE DOSE OF ATEZO/BEV / D-14

REACTIONS (5)
  - Febrile neutropenia [Recovered/Resolved]
  - Pancytopenia [Recovered/Resolved]
  - Rash erythematous [Recovered/Resolved]
  - Colitis [Recovered/Resolved]
  - Drug effective for unapproved indication [Unknown]
